FAERS Safety Report 9663754 (Version 2)
Quarter: 2013Q4

REPORT INFORMATION
  Report Type: Spontaneous
  Country: IN (occurrence: IN)
  Receive Date: 20131101
  Receipt Date: 20131107
  Transmission Date: 20140711
  Serious: Yes (Other)
  Sender: FDA-Public Use
  Company Number: PHHY2013IN121907

PATIENT
  Sex: Male
  Weight: 2 kg

DRUGS (3)
  1. IMATINIB [Suspect]
     Indication: CHRONIC MYELOID LEUKAEMIA
     Route: 064
  2. ALLOPURINOL [Suspect]
     Route: 064
  3. HYDROXYCARBAMIDE [Suspect]
     Route: 064

REACTIONS (2)
  - Low birth weight baby [Unknown]
  - Foetal exposure during pregnancy [Unknown]
